FAERS Safety Report 25136075 (Version 3)
Quarter: 2025Q3

REPORT INFORMATION
  Report Type: Spontaneous
  Country: JP (occurrence: JP)
  Receive Date: 20250328
  Receipt Date: 20250809
  Transmission Date: 20251021
  Serious: Yes (Life-Threatening, Hospitalization, Other)
  Sender: ALEXION PHARMACEUTICALS
  Company Number: JP-ASTRAZENECA-250028957_010520_P_1

PATIENT
  Age: 57 Year
  Sex: Female

DRUGS (12)
  1. TRUQAP [Suspect]
     Active Substance: CAPIVASERTIB
     Indication: Breast cancer
     Dosage: 320 MILLIGRAM, BID
     Dates: start: 202503
  2. FASLODEX [Suspect]
     Active Substance: FULVESTRANT
     Indication: Breast cancer
  3. FASLODEX [Suspect]
     Active Substance: FULVESTRANT
  4. NOLVADEX [Suspect]
     Active Substance: TAMOXIFEN CITRATE
     Indication: Breast cancer
  5. LETROZOLE [Concomitant]
     Active Substance: LETROZOLE
     Indication: Breast cancer female
     Route: 065
  6. ABEMACICLIB [Concomitant]
     Active Substance: ABEMACICLIB
     Indication: Breast cancer female
     Route: 065
  7. DENOSUMAB [Concomitant]
     Active Substance: DENOSUMAB
     Indication: Breast cancer female
     Route: 065
  8. BEVACIZUMAB [Concomitant]
     Active Substance: BEVACIZUMAB
     Indication: Breast cancer female
     Route: 065
  9. PACLITAXEL [Concomitant]
     Active Substance: PACLITAXEL
     Indication: Breast cancer female
     Route: 065
  10. TRASTUZUMAB DERUXTECAN [Concomitant]
     Active Substance: TRASTUZUMAB DERUXTECAN
     Indication: Breast cancer female
     Route: 065
  11. DOXORUBICIN HYDROCHLORIDE [Concomitant]
     Active Substance: DOXORUBICIN HYDROCHLORIDE
     Indication: Breast cancer female
     Route: 065
  12. Cyclophosphamide hikma [Concomitant]
     Indication: Breast cancer female
     Route: 065

REACTIONS (7)
  - Ketoacidosis [Unknown]
  - Metastases to liver [Unknown]
  - Renal impairment [Unknown]
  - White blood cell count increased [Unknown]
  - Hepatic function abnormal [Unknown]
  - Diarrhoea [Unknown]
  - Abdominal pain upper [Unknown]
